FAERS Safety Report 14636752 (Version 2)
Quarter: 2018Q2

REPORT INFORMATION
  Report Type: Report from Study
  Country: HU (occurrence: HU)
  Receive Date: 20180314
  Receipt Date: 20180416
  Transmission Date: 20180711
  Serious: Yes (Other)
  Sender: FDA-Public Use
  Company Number: HU-JNJFOC-20180308603

PATIENT
  Age: 61 Year
  Sex: Female
  Weight: 84.5 kg

DRUGS (4)
  1. STELARA [Suspect]
     Active Substance: USTEKINUMAB
     Indication: PSORIASIS
     Route: 058
     Dates: start: 20160913
  2. PANTOPRAZOLE [Concomitant]
     Active Substance: PANTOPRAZOLE
     Dosage: IN THE EVENING
     Route: 065
     Dates: start: 20090307
  3. COVEREX AS [Concomitant]
     Active Substance: PERINDOPRIL ARGININE
     Dosage: COMB 5/1.25 MG
     Route: 065
     Dates: start: 20171004
  4. RAWEL [Concomitant]
     Route: 065
     Dates: start: 20080313

REACTIONS (1)
  - Breast neoplasm [Not Recovered/Not Resolved]

NARRATIVE: CASE EVENT DATE: 20180131
